FAERS Safety Report 25418396 (Version 1)
Quarter: 2025Q2

REPORT INFORMATION
  Report Type: Spontaneous
  Country: RU (occurrence: RU)
  Receive Date: 20250610
  Receipt Date: 20250610
  Transmission Date: 20250717
  Serious: Yes (Hospitalization, Other)
  Sender: FRESENIUS KABI
  Company Number: RU-FreseniusKabi-FK202507850

PATIENT
  Age: 36 Year
  Sex: Female
  Weight: 50 kg

DRUGS (11)
  1. PROPOFOL [Suspect]
     Active Substance: PROPOFOL
     Indication: Anaesthesia
     Route: 042
     Dates: start: 20250208, end: 20250208
  2. SODIUM CHLORIDE [Concomitant]
     Active Substance: SODIUM CHLORIDE
     Indication: Product used for unknown indication
     Route: 042
     Dates: start: 20250208, end: 20250208
  3. ACETAMINOPHEN [Concomitant]
     Active Substance: ACETAMINOPHEN
     Indication: Product used for unknown indication
     Route: 042
     Dates: start: 20250208, end: 20250208
  4. Ketonal [Concomitant]
     Indication: Product used for unknown indication
     Route: 042
     Dates: start: 20250208, end: 20250208
  5. Stagemin [Concomitant]
     Indication: Product used for unknown indication
     Route: 042
     Dates: start: 20250208, end: 20250208
  6. DEXAMETHASONE [Concomitant]
     Active Substance: DEXAMETHASONE
     Indication: Product used for unknown indication
     Route: 042
     Dates: start: 20250208, end: 20250208
  7. MENOTROPINS [Concomitant]
     Active Substance: MENOTROPINS
     Indication: Product used for unknown indication
     Route: 058
     Dates: start: 20250130, end: 20250205
  8. Decapeptyl [Concomitant]
     Indication: Product used for unknown indication
     Route: 058
     Dates: start: 20250205, end: 20250205
  9. FOLIC ACID [Concomitant]
     Active Substance: FOLIC ACID
     Indication: Product used for unknown indication
  10. CETROTIDE [Concomitant]
     Active Substance: CETRORELIX ACETATE
     Indication: Product used for unknown indication
     Route: 058
     Dates: start: 20250203, end: 20250206
  11. FOLLITROPIN\LUTROPIN ALFA [Concomitant]
     Active Substance: FOLLITROPIN\LUTROPIN ALFA
     Indication: Product used for unknown indication
     Route: 058
     Dates: start: 20250205, end: 20250206

REACTIONS (4)
  - Bacterial infection [Recovering/Resolving]
  - Sepsis [Recovering/Resolving]
  - Endotoxic shock [Recovering/Resolving]
  - Disseminated intravascular coagulation [Recovering/Resolving]

NARRATIVE: CASE EVENT DATE: 20250208
